FAERS Safety Report 6059068-1 (Version None)
Quarter: 2009Q1

REPORT INFORMATION
  Report Type: 
  Country: None (occurrence: None)
  Receive Date: 20090130
  Receipt Date: 20090121
  Transmission Date: 20090719
  Serious: Yes (Hospitalization)
  Sender: FDA-Public Use
  Company Number: B0555343A

PATIENT
  Age: 84 Year
  Sex: Female

DRUGS (12)
  1. ZOVIRAX [Suspect]
     Indication: ENCEPHALITIS HERPES
     Dosage: 15MLK THREE TIMES PER DAY
     Route: 042
     Dates: start: 20080208, end: 20080212
  2. AUGMENTIN '125' [Suspect]
     Dosage: 1G THREE TIMES PER DAY
     Route: 048
     Dates: start: 20080208, end: 20080213
  3. BISOPROLOL [Suspect]
     Indication: ARRHYTHMIA
     Route: 048
     Dates: end: 20080211
  4. FLODIL [Suspect]
     Indication: ARRHYTHMIA
     Dosage: 5MG PER DAY
     Route: 048
     Dates: end: 20080211
  5. TRIMETAZIDINE [Suspect]
     Route: 048
     Dates: end: 20080211
  6. LOVENOX [Suspect]
     Dosage: 4000IU PER DAY
     Route: 058
     Dates: start: 20080211
  7. ATARAX [Suspect]
     Indication: AGITATION
     Dosage: 100MG PER DAY
     Route: 042
     Dates: start: 20080211
  8. COAGULATION FACTORS [Suspect]
     Route: 042
     Dates: start: 20080208, end: 20080208
  9. PREVISCAN [Concomitant]
     Route: 048
  10. ACETAMINOPHEN [Concomitant]
     Route: 065
     Dates: start: 20080208, end: 20080210
  11. TIAPRIDAL [Concomitant]
     Route: 065
     Dates: start: 20080208, end: 20080208
  12. ROCEPHIN [Concomitant]
     Dates: start: 20080213

REACTIONS (1)
  - RENAL FAILURE ACUTE [None]
